FAERS Safety Report 8054278-6 (Version None)
Quarter: 2012Q1

REPORT INFORMATION
  Report Type: 
  Country: None (occurrence: None)
  Receive Date: 20120118
  Receipt Date: 20120105
  Transmission Date: 20120608
  Serious: Yes (Other)
  Sender: FDA-Public Use
  Company Number: PHEH2012US000620

PATIENT
  Sex: Male

DRUGS (12)
  1. VITAMIN B COMPLEX CAP [Concomitant]
  2. ASPIRIN [Concomitant]
     Dosage: 81 MG
  3. EXELON [Suspect]
     Dosage: 4.6 MG\24H
     Route: 062
  4. LEVOTHYROXINE SODIUM [Concomitant]
  5. CEREFOLIN [Concomitant]
  6. EXELON [Suspect]
     Dosage: 9.5 MG/24 HOURS
     Route: 062
  7. ASCORBIC ACID [Concomitant]
  8. EXELON [Suspect]
     Dosage: 2 PATCH
     Route: 062
  9. VITAMIN D [Concomitant]
  10. EXELON [Suspect]
     Dosage: 4.6 MG,\24H
     Route: 062
  11. COREG [Concomitant]
  12. ISOSORBIDE MONONITRATE [Concomitant]

REACTIONS (9)
  - FAECAL INCONTINENCE [None]
  - DISORIENTATION [None]
  - AMNESIA [None]
  - WRONG TECHNIQUE IN DRUG USAGE PROCESS [None]
  - SUDDEN ONSET OF SLEEP [None]
  - ILLUSION [None]
  - NIGHTMARE [None]
  - MEMORY IMPAIRMENT [None]
  - COORDINATION ABNORMAL [None]
